FAERS Safety Report 11704457 (Version 2)
Quarter: 2016Q1

REPORT INFORMATION
  Report Type: Spontaneous
  Country: US (occurrence: US)
  Receive Date: 20151106
  Receipt Date: 20160122
  Transmission Date: 20160525
  Serious: No
  Sender: FDA-Public Use
  Company Number: US-PFIZER INC-2015353364

PATIENT
  Age: 15 Year
  Sex: Female
  Weight: 54 kg

DRUGS (2)
  1. ADVIL [Suspect]
     Active Substance: IBUPROFEN
     Indication: DYSMENORRHOEA
     Dosage: 200 MG, UNK
     Route: 048
     Dates: start: 2013
  2. ADVIL [Suspect]
     Active Substance: IBUPROFEN
     Dosage: UNK
     Route: 048
     Dates: start: 20151018, end: 20151018

REACTIONS (5)
  - Swelling face [Recovered/Resolved]
  - Dizziness [Recovering/Resolving]
  - Throat irritation [Recovering/Resolving]
  - Erythema [Recovered/Resolved]
  - Flushing [Recovered/Resolved]

NARRATIVE: CASE EVENT DATE: 20151017
